FAERS Safety Report 24366709 (Version 2)
Quarter: 2024Q3

REPORT INFORMATION
  Report Type: Report from Study
  Country: US (occurrence: US)
  Receive Date: 20240926
  Receipt Date: 20240930
  Transmission Date: 20241016
  Serious: Yes (Hospitalization, Other)
  Sender: NOVARTIS
  Company Number: US-002147023-NVSC2023US269954

PATIENT
  Sex: Male

DRUGS (1)
  1. ENTRESTO [Suspect]
     Active Substance: SACUBITRIL\VALSARTAN
     Indication: Product used for unknown indication
     Dosage: 24 MG, UNKNOWN (24/26MG)
     Route: 048
     Dates: start: 20220422

REACTIONS (5)
  - Cardiac failure congestive [Unknown]
  - Product dose omission issue [Unknown]
  - Myocardial infarction [Unknown]
  - Condition aggravated [Unknown]
  - Product use issue [Unknown]
